FAERS Safety Report 8303092-2 (Version None)
Quarter: 2012Q2

REPORT INFORMATION
  Report Type: 
  Country: None (occurrence: None)
  Receive Date: 20120423
  Receipt Date: 20120410
  Transmission Date: 20120825
  Serious: Yes (Other)
  Sender: FDA-Public Use
  Company Number: BR-AMGEN-BRASP2012023405

PATIENT
  Age: 59 Year
  Sex: Female
  Weight: 63 kg

DRUGS (4)
  1. ENBREL [Suspect]
     Dosage: 50 MG, WEEKLY
     Route: 058
     Dates: start: 20120101
  2. PREDNISONE TAB [Concomitant]
     Dosage: 5 MG, 2X/DAY
  3. IBUPROFEN [Concomitant]
     Indication: PAIN
     Dosage: UNK, AS NEEDED
  4. ENBREL [Suspect]
     Indication: RHEUMATOID ARTHRITIS
     Dosage: UNK
     Route: 058
     Dates: start: 20100801, end: 20111201

REACTIONS (3)
  - IMMUNODEFICIENCY [None]
  - SKIN SENSITISATION [None]
  - INJECTION SITE HAEMATOMA [None]
